FAERS Safety Report 7411305-4 (Version None)
Quarter: 2011Q2

REPORT INFORMATION
  Report Type: 
  Country: None (occurrence: None)
  Receive Date: 20110413
  Receipt Date: 20100604
  Transmission Date: 20111010
  Serious: No
  Sender: FDA-Public Use
  Company Number: US-BRISTOL-MYERS SQUIBB COMPANY-15135239

PATIENT
  Age: 58 Year
  Sex: Male
  Weight: 122 kg

DRUGS (10)
  1. CAMPTOSAR [Concomitant]
  2. SIMVASTATIN [Concomitant]
  3. ERBITUX [Suspect]
     Indication: COLORECTAL CANCER
     Dates: start: 20100101
  4. OXYBUTYNIN [Concomitant]
  5. LASIX [Concomitant]
  6. ASPIRIN [Concomitant]
  7. BENADRYL [Concomitant]
     Indication: PREMEDICATION
  8. METOPROLOL TARTRATE [Concomitant]
  9. DETROL [Concomitant]
  10. DIOVAN [Concomitant]

REACTIONS (3)
  - RASH PAPULAR [None]
  - DIARRHOEA [None]
  - FATIGUE [None]
